FAERS Safety Report 6308597-1 (Version None)
Quarter: 2009Q3

REPORT INFORMATION
  Report Type: 
  Country: None (occurrence: None)
  Receive Date: 20090813
  Receipt Date: 20090806
  Transmission Date: 20100115
  Serious: Yes (Hospitalization, Other)
  Sender: FDA-Public Use
  Company Number: PHHO2008CA08886

PATIENT
  Sex: Male

DRUGS (4)
  1. NEORAL [Suspect]
     Indication: RENAL TRANSPLANT
     Dosage: 700 MG, BID
     Dates: start: 20080408, end: 20080731
  2. ERL 080A ERL+TAB [Suspect]
     Indication: RENAL TRANSPLANT
     Dosage: 720 MG, BID
     Dates: start: 20080408, end: 20080731
  3. MYFORTIC [Suspect]
     Dosage: UNK
     Dates: start: 20080813
  4. STEROIDS NOS [Suspect]

REACTIONS (14)
  - BLOOD CREATININE INCREASED [None]
  - DRUG INEFFECTIVE [None]
  - FEBRILE NEUTROPENIA [None]
  - HYDRONEPHROSIS [None]
  - INFECTION [None]
  - KIDNEY TRANSPLANT REJECTION [None]
  - NEPHROPATHY [None]
  - NEPHROSTOMY TUBE PLACEMENT [None]
  - OBSTRUCTION [None]
  - OBSTRUCTIVE UROPATHY [None]
  - URETERAL STENT REMOVAL [None]
  - URETERIC STENOSIS [None]
  - URINARY TRACT INFECTION [None]
  - WHITE BLOOD CELL COUNT DECREASED [None]
